FAERS Safety Report 13957011 (Version 2)
Quarter: 2017Q4

REPORT INFORMATION
  Report Type: Spontaneous
  Country: JP (occurrence: JP)
  Receive Date: 20170912
  Receipt Date: 20171003
  Transmission Date: 20180320
  Serious: Yes (Hospitalization, Other)
  Sender: FDA-Public Use
  Company Number: JP-BRISTOL-MYERS SQUIBB COMPANY-BMS-2017-079610

PATIENT
  Age: 65 Year
  Sex: Male

DRUGS (1)
  1. METGLUCO [Suspect]
     Active Substance: METFORMIN HYDROCHLORIDE
     Indication: TYPE 2 DIABETES MELLITUS
     Route: 048

REACTIONS (6)
  - Renal disorder [Recovering/Resolving]
  - Blood pressure decreased [Recovering/Resolving]
  - Gastroenteritis [Unknown]
  - Lactic acidosis [Recovering/Resolving]
  - White blood cell count increased [Unknown]
  - Procalcitonin increased [Unknown]
